FAERS Safety Report 24052362 (Version 1)
Quarter: 2024Q3

REPORT INFORMATION
  Report Type: Spontaneous
  Country: UA (occurrence: UA)
  Receive Date: 20240704
  Receipt Date: 20240704
  Transmission Date: 20241016
  Serious: Yes (Death)
  Sender: ROCHE
  Company Number: UA-BoehringerIngelheim-2024-BI-036204

PATIENT
  Age: 62 Year
  Sex: Male

DRUGS (1)
  1. ACTIVASE [Suspect]
     Active Substance: ALTEPLASE
     Indication: Ischaemic stroke
     Route: 042
     Dates: start: 20240612, end: 20240612

REACTIONS (2)
  - Pulmonary oedema [Fatal]
  - Asphyxia [Fatal]

NARRATIVE: CASE EVENT DATE: 20240612
